FAERS Safety Report 9033396 (Version 1)
Quarter: 2013Q1

REPORT INFORMATION
  Report Type: Spontaneous
  Country: US (occurrence: US)
  Receive Date: 20130128
  Receipt Date: 20130128
  Transmission Date: 20140127
  Serious: Yes (Other)
  Sender: FDA-Public Use
  Company Number: CHPA2013US001580

PATIENT
  Age: 63 Year
  Sex: Female

DRUGS (2)
  1. 4 WAY SALINE MOISTURIZING MIST [Suspect]
     Indication: NASAL CONGESTION
     Dosage: 2 DF, BID
     Route: 045
     Dates: start: 2000
  2. FLONASE [Concomitant]

REACTIONS (2)
  - Tooth fracture [Not Recovered/Not Resolved]
  - Expired drug administered [Unknown]
